FAERS Safety Report 17313537 (Version 3)
Quarter: 2020Q2

REPORT INFORMATION
  Report Type: Spontaneous
  Country: US (occurrence: US)
  Receive Date: 20200124
  Receipt Date: 20200615
  Transmission Date: 20200713
  Serious: No
  Sender: FDA-Public Use
  Company Number: US-009507513-2001USA004427

PATIENT
  Age: 21 Year
  Sex: Female
  Weight: 103.4 kg

DRUGS (2)
  1. LIDOCAINE. [Suspect]
     Active Substance: LIDOCAINE
  2. NEXPLANON [Suspect]
     Active Substance: ETONOGESTREL
     Indication: CONTRACEPTION
     Dosage: 1 IMPLANT
     Route: 059
     Dates: start: 20190917, end: 20200101

REACTIONS (6)
  - Rash pruritic [Recovered/Resolved]
  - Implant site hypersensitivity [Not Recovered/Not Resolved]
  - Implant site fibrosis [Unknown]
  - Complication of device removal [Recovered/Resolved with Sequelae]
  - Complication associated with device [Recovered/Resolved]
  - Implant site mass [Not Recovered/Not Resolved]

NARRATIVE: CASE EVENT DATE: 201909
